FAERS Safety Report 10819598 (Version 1)
Quarter: 2015Q1

REPORT INFORMATION
  Report Type: Spontaneous
  Country: GB (occurrence: GB)
  Receive Date: 20150218
  Receipt Date: 20150218
  Transmission Date: 20150721
  Serious: Yes (Disabling)
  Sender: FDA-Public Use
  Company Number: GB-ABBVIE-15P-167-1348866-00

PATIENT
  Age: 20 Year
  Sex: Female

DRUGS (1)
  1. CLARITHROMYCIN. [Suspect]
     Active Substance: CLARITHROMYCIN
     Indication: SKIN INFECTION
     Route: 048

REACTIONS (5)
  - Palpitations [Unknown]
  - Insomnia [Unknown]
  - Chest discomfort [Unknown]
  - Pain in extremity [Unknown]
  - Hypoaesthesia [Unknown]
